FAERS Safety Report 21248887 (Version 1)
Quarter: 2022Q3

REPORT INFORMATION
  Report Type: Spontaneous
  Country: US (occurrence: US)
  Receive Date: 20220824
  Receipt Date: 20220824
  Transmission Date: 20221027
  Serious: No
  Sender: FDA-Public Use
  Company Number: US-ANIPHARMA-2022-US-001978

PATIENT
  Sex: Female

DRUGS (2)
  1. ANASTROZOLE [Suspect]
     Active Substance: ANASTROZOLE
     Indication: Product used for unknown indication
     Route: 065
  2. IBRANCE [Suspect]
     Active Substance: PALBOCICLIB
     Dosage: 135 MG EVERY DAY BY MOUTH, 21 DAYS ON, 7 DAYS OFF
     Route: 048
     Dates: start: 202109, end: 202201

REACTIONS (1)
  - Hot flush [Not Recovered/Not Resolved]

NARRATIVE: CASE EVENT DATE: 20211101
